FAERS Safety Report 8720131 (Version 5)
Quarter: 2013Q1

REPORT INFORMATION
  Report Type: Spontaneous
  Country: HU (occurrence: HU)
  Receive Date: 20120813
  Receipt Date: 20130212
  Transmission Date: 20140127
  Serious: Yes (Other)
  Sender: FDA-Public Use
  Company Number: HU-ELI_LILLY_AND_COMPANY-HU201208000633

PATIENT
  Age: 63 Year
  Sex: Male

DRUGS (6)
  1. ZYPADHERA [Suspect]
     Indication: SCHIZOPHRENIA, RESIDUAL TYPE
     Dosage: 405 MG, MONTHLY (1/M)
     Route: 030
     Dates: start: 20100602
  2. RIVOTRIL [Concomitant]
     Dosage: 1 DF, UNKNOWN
  3. HALOPERIDOL [Concomitant]
     Dosage: 1 DF, UNKNOWN
  4. KEMADRIN [Concomitant]
     Dosage: 1 DF, UNKNOWN
  5. HELEX [Concomitant]
     Dosage: 1 DF, UNKNOWN
  6. RISPERDON [Concomitant]
     Dosage: 1 DF, UNKNOWN

REACTIONS (4)
  - Somnolence [Recovered/Resolved]
  - Dysarthria [Recovered/Resolved]
  - Gait disturbance [Recovered/Resolved]
  - Coordination abnormal [Recovered/Resolved]
